FAERS Safety Report 24779153 (Version 2)
Quarter: 2024Q4

REPORT INFORMATION
  Report Type: Spontaneous
  Country: LB (occurrence: LB)
  Receive Date: 20241226
  Receipt Date: 20241230
  Transmission Date: 20250114
  Serious: Yes (Hospitalization, Other)
  Sender: PFIZER
  Company Number: LB-PFIZER INC-PV202400166456

PATIENT
  Age: 27 Year
  Sex: Female

DRUGS (3)
  1. MISOPROSTOL [Suspect]
     Active Substance: MISOPROSTOL
     Indication: Labour induction
     Dosage: 200 UG
     Route: 067
  2. MISOPROSTOL [Suspect]
     Active Substance: MISOPROSTOL
     Dosage: 400 UG
     Route: 067
  3. MISOPROSTOL [Suspect]
     Active Substance: MISOPROSTOL
     Dosage: 200 UG
     Route: 067

REACTIONS (4)
  - Vulvovaginal injury [Unknown]
  - Foetal death [Unknown]
  - Uterine rupture [Unknown]
  - Off label use [Unknown]
